FAERS Safety Report 19257634 (Version 1)
Quarter: 2021Q2

REPORT INFORMATION
  Report Type: Spontaneous
  Country: US (occurrence: US)
  Receive Date: 20210513
  Receipt Date: 20210513
  Transmission Date: 20210717
  Serious: Yes (Other)
  Sender: FDA-Public Use
  Company Number: None

PATIENT
  Age: 63 Year
  Sex: Female
  Weight: 98.3 kg

DRUGS (12)
  1. APIXABAN [Concomitant]
     Active Substance: APIXABAN
     Dates: start: 20210424, end: 20210513
  2. PEPTO?BISMOL [Concomitant]
     Active Substance: BISMUTH SUBSALICYLATE
     Dates: start: 20210424, end: 20210513
  3. ARIPIPRAZOLE. [Concomitant]
     Active Substance: ARIPIPRAZOLE
     Dates: start: 20210424, end: 20210430
  4. FUROSEMIDE. [Concomitant]
     Active Substance: FUROSEMIDE
     Dates: start: 20210424, end: 20210513
  5. MELATONIN [Concomitant]
     Active Substance: MELATONIN
     Dates: start: 20210424, end: 20210513
  6. OXCARBAZEPINE. [Concomitant]
     Active Substance: OXCARBAZEPINE
     Dates: start: 20210501, end: 20210502
  7. TAMSULOSIN [Concomitant]
     Active Substance: TAMSULOSIN
     Dates: start: 20210424, end: 20210513
  8. LORAZEPAM. [Suspect]
     Active Substance: LORAZEPAM
     Indication: AGITATION
     Dosage: ?          OTHER FREQUENCY:EVERY 4 HOURS PRN;?
     Route: 048
     Dates: start: 20210502, end: 20210502
  9. OLANZAPINE. [Suspect]
     Active Substance: OLANZAPINE
     Indication: BIPOLAR DISORDER
     Dosage: ?          OTHER FREQUENCY:Q8HR PRN AGITATION;?
     Route: 048
     Dates: start: 20210501, end: 20210502
  10. AMLODIPINE [Concomitant]
     Active Substance: AMLODIPINE BESYLATE
     Dates: start: 20210424, end: 20210513
  11. LITHIUM. [Concomitant]
     Active Substance: LITHIUM
     Dates: start: 20210424, end: 20210501
  12. LAMOTRIGINE. [Concomitant]
     Active Substance: LAMOTRIGINE
     Dates: start: 20210429, end: 20210502

REACTIONS (3)
  - Acute respiratory failure [None]
  - Toxic encephalopathy [None]
  - Oxygen saturation decreased [None]

NARRATIVE: CASE EVENT DATE: 20210502
